FAERS Safety Report 14990818 (Version 1)
Quarter: 2018Q2

REPORT INFORMATION
  Report Type: Spontaneous
  Country: IT (occurrence: IT)
  Receive Date: 20180608
  Receipt Date: 20180608
  Transmission Date: 20180711
  Serious: Yes (Hospitalization)
  Sender: FDA-Public Use
  Company Number: IT-ELI_LILLY_AND_COMPANY-IT201806002003

PATIENT
  Sex: Female

DRUGS (2)
  1. FORSTEO [Suspect]
     Active Substance: TERIPARATIDE
     Indication: OSTEOPOROSIS
     Dosage: UNK UNK, UNKNOWN
     Route: 065
     Dates: start: 2016
  2. FORSTEO [Suspect]
     Active Substance: TERIPARATIDE
     Indication: OSTEOPENIA

REACTIONS (3)
  - Breast cancer [Unknown]
  - Osteoporosis [Unknown]
  - Hypoacusis [Unknown]
